FAERS Safety Report 6684445-5 (Version None)
Quarter: 2010Q2

REPORT INFORMATION
  Report Type: 
  Country: None (occurrence: None)
  Receive Date: 20100416
  Receipt Date: 20100407
  Transmission Date: 20101027
  Serious: Yes (Life-Threatening, Hospitalization)
  Sender: FDA-Public Use
  Company Number: GXKR2010US03971

PATIENT
  Age: 48 Year
  Sex: Male

DRUGS (5)
  1. NEBIVOLOL (NGX) [Suspect]
     Dosage: UNK
     Route: 048
  2. DIAZEPAM [Suspect]
     Dosage: UNK
     Route: 065
  3. BACLOFEN (NGX) [Suspect]
     Route: 065
  4. ETHANOL (NGX) [Suspect]
     Route: 048
  5. COCAINE (NGX) [Suspect]
     Route: 065

REACTIONS (7)
  - BRADYCARDIA [None]
  - CARDIAC ARREST [None]
  - ENDOTRACHEAL INTUBATION [None]
  - HYPOTENSION [None]
  - INTENTIONAL OVERDOSE [None]
  - RESUSCITATION [None]
  - UNRESPONSIVE TO STIMULI [None]
